FAERS Safety Report 13009498 (Version 11)
Quarter: 2019Q2

REPORT INFORMATION
  Report Type: Report from Study
  Country: GB (occurrence: GB)
  Receive Date: 20161208
  Receipt Date: 20190410
  Transmission Date: 20190711
  Serious: Yes (Other)
  Sender: FDA-Public Use
  Company Number: GB-JNJFOC-20161022680

PATIENT
  Sex: Female

DRUGS (1)
  1. SIMPONI [Suspect]
     Active Substance: GOLIMUMAB
     Indication: PSORIATIC ARTHROPATHY
     Dosage: DOSE: 50 MG/0.5 ML
     Route: 058

REACTIONS (10)
  - Alopecia [Unknown]
  - Adverse drug reaction [Not Recovered/Not Resolved]
  - Headache [Unknown]
  - Psoriasis [Unknown]
  - Angina pectoris [Unknown]
  - Chest discomfort [Unknown]
  - Therapeutic product effect decreased [Unknown]
  - Lower respiratory tract infection [Recovering/Resolving]
  - Heart rate irregular [Unknown]
  - Nasopharyngitis [Unknown]
